FAERS Safety Report 6694849-2 (Version None)
Quarter: 2010Q2

REPORT INFORMATION
  Report Type: 
  Country: None (occurrence: None)
  Receive Date: 20100423
  Receipt Date: 20100413
  Transmission Date: 20101027
  Serious: Yes (Other)
  Sender: FDA-Public Use
  Company Number: US-WYE-H14585710

PATIENT
  Sex: Female
  Weight: 135.75 kg

DRUGS (7)
  1. PRISTIQ [Suspect]
     Indication: DEPRESSION
     Dates: start: 20090101
  2. PERCOCET [Concomitant]
     Dosage: ^10^, FREQUENCY 2-3 TIMES DAILY
  3. PRILOSEC [Concomitant]
     Dosage: UNKNOWN
  4. ROZEREM [Concomitant]
  5. ABILIFY [Concomitant]
     Dosage: 10 MG, FREQUENCY UNKNOWN
  6. MORPHINE [Concomitant]
  7. NEURONTIN [Concomitant]

REACTIONS (4)
  - CONDITION AGGRAVATED [None]
  - DEPRESSION [None]
  - DRUG EFFECT DECREASED [None]
  - MULTIPLE SCLEROSIS [None]
